FAERS Safety Report 22614875 (Version 1)
Quarter: 2023Q2

REPORT INFORMATION
  Report Type: Spontaneous
  Country: US (occurrence: US)
  Receive Date: 20230619
  Receipt Date: 20230619
  Transmission Date: 20230721
  Serious: No
  Sender: FDA-Public Use
  Company Number: US-INSUD PHARMA-2306US03881

PATIENT

DRUGS (1)
  1. ESTRADIOL [Suspect]
     Active Substance: ESTRADIOL
     Indication: Menopausal symptoms
     Dosage: 1.25 MILLIGRAM, QD
     Route: 061
     Dates: start: 202212, end: 202303

REACTIONS (2)
  - Drug effect less than expected [Unknown]
  - Product substitution issue [Unknown]
